FAERS Safety Report 7609533-8 (Version None)
Quarter: 2011Q3

REPORT INFORMATION
  Report Type: 
  Country: None (occurrence: None)
  Receive Date: 20110714
  Receipt Date: 20110705
  Transmission Date: 20111222
  Serious: Yes (Death)
  Sender: FDA-Public Use
  Company Number: DE-UCBSA-036616

PATIENT
  Sex: Female

DRUGS (3)
  1. TROBALT [Suspect]
  2. ANTIEPILEPTIC [Concomitant]
  3. LACOSAMIDE [Suspect]
     Indication: STATUS EPILEPTICUS

REACTIONS (2)
  - OFF LABEL USE [None]
  - DEATH [None]
